FAERS Safety Report 23743746 (Version 2)
Quarter: 2024Q2

REPORT INFORMATION
  Report Type: Report from Study
  Country: GB (occurrence: GB)
  Receive Date: 20240415
  Receipt Date: 20240513
  Transmission Date: 20240716
  Serious: Yes (Other)
  Sender: FDA-Public Use
  Company Number: GB-SANDOZ-SDZ2024GB010943

PATIENT
  Sex: Female

DRUGS (1)
  1. OMNITROPE [Suspect]
     Active Substance: SOMATROPIN
     Indication: Growth hormone deficiency
     Dosage: 0.35 MG, QD
     Route: 058
     Dates: start: 20230227

REACTIONS (5)
  - Lower respiratory tract infection [Unknown]
  - Hypervigilance [Unknown]
  - Myalgia [Unknown]
  - Drug ineffective [Unknown]
  - Product dose omission issue [Unknown]
